FAERS Safety Report 10198781 (Version 1)
Quarter: 2014Q2

REPORT INFORMATION
  Report Type: Spontaneous
  Country: US (occurrence: US)
  Receive Date: 20140527
  Receipt Date: 20140527
  Transmission Date: 20141212
  Serious: No
  Sender: FDA-Public Use
  Company Number: US-NOVEN-13US007487

PATIENT
  Age: 26 Year
  Sex: Female
  Weight: 83.9 kg

DRUGS (3)
  1. DAYTRANA [Suspect]
     Indication: NARCOLEPSY
     Dosage: 30 MG, PRN
     Route: 062
     Dates: start: 201301
  2. TRAMADOL [Concomitant]
     Indication: PAIN
     Dosage: 50 MG, PRN
  3. NAPROXEN [Concomitant]
     Indication: PAIN
     Route: 048

REACTIONS (2)
  - Off label use [Not Recovered/Not Resolved]
  - No adverse event [None]
